FAERS Safety Report 7163113-X (Version None)
Quarter: 2010Q4

REPORT INFORMATION
  Report Type: 
  Country: None (occurrence: None)
  Receive Date: 20101215
  Receipt Date: 20100225
  Transmission Date: 20110411
  Serious: Yes (Other)
  Sender: FDA-Public Use
  Company Number: US-PFIZER INC-2010000324

PATIENT
  Sex: Female
  Weight: 75.283 kg

DRUGS (7)
  1. LYRICA [Suspect]
     Indication: TARSAL TUNNEL SYNDROME
     Dosage: 75 MG, 1X/DAY
     Dates: start: 20091001, end: 20091001
  2. LYRICA [Suspect]
     Dosage: 75MG IN MORNING AND 150MG AT BEDTIME
     Dates: start: 20091001
  3. SYNTHROID [Concomitant]
     Indication: THYROIDECTOMY
     Dosage: UNK
  4. ACETYLSALICYLIC ACID [Concomitant]
     Dosage: UNK
  5. CELEXA [Concomitant]
     Indication: DEPRESSION
     Dosage: UNK
  6. ACIPHEX [Concomitant]
     Indication: GASTROOESOPHAGEAL REFLUX DISEASE
     Dosage: UNK
  7. AXERT [Concomitant]
     Indication: HEADACHE
     Dosage: UNK

REACTIONS (3)
  - ANXIETY [None]
  - EXTRASYSTOLES [None]
  - PALPITATIONS [None]
